FAERS Safety Report 22228782 (Version 1)
Quarter: 2023Q2

REPORT INFORMATION
  Report Type: Spontaneous
  Country: US (occurrence: US)
  Receive Date: 20230419
  Receipt Date: 20230419
  Transmission Date: 20230721
  Serious: Yes (Other)
  Sender: FDA-Public Use
  Company Number: US-MYLANLABS-2023M1041236

PATIENT
  Age: 39 Year
  Sex: Female

DRUGS (4)
  1. CISPLATIN [Suspect]
     Active Substance: CISPLATIN
     Indication: Cervix cancer metastatic
     Dosage: UNK, CYCLE,COMPLETED 6 CYCLES WITH RADIATION; THEN 1 CYCLE WITH BEVACIZUMAB AND PACLITAXEL UNTIL DIS
     Route: 065
  2. PACLITAXEL [Suspect]
     Active Substance: PACLITAXEL
     Indication: Cervix cancer metastatic
     Dosage: UNK, CYCLE
     Route: 065
  3. CARBOPLATIN [Suspect]
     Active Substance: CARBOPLATIN
     Indication: Cervix cancer metastatic
     Dosage: UNK, CYCLE
     Route: 065
  4. BEVACIZUMAB [Suspect]
     Active Substance: BEVACIZUMAB
     Indication: Cervix cancer metastatic
     Dosage: UNK
     Route: 065

REACTIONS (2)
  - Drug ineffective [Unknown]
  - Nephropathy toxic [Unknown]
